FAERS Safety Report 10395676 (Version 1)
Quarter: 2014Q3

REPORT INFORMATION
  Report Type: Spontaneous
  Country: US (occurrence: None)
  Receive Date: 20140815
  Receipt Date: 20140815
  Transmission Date: 20150326
  Serious: Yes (Hospitalization)
  Sender: FDA-Public Use
  Company Number: None

PATIENT
  Age: 63 Year
  Sex: Male
  Weight: 83.7 kg

DRUGS (2)
  1. TAXOL [Suspect]
     Active Substance: PACLITAXEL
  2. CARBOPLATIN. [Suspect]
     Active Substance: CARBOPLATIN

REACTIONS (6)
  - Chills [None]
  - Pyrexia [None]
  - Neutropenia [None]
  - Tachycardia [None]
  - Tachypnoea [None]
  - Hypotension [None]

NARRATIVE: CASE EVENT DATE: 20140805
